FAERS Safety Report 8783222 (Version 1)
Quarter: 2012Q4

REPORT INFORMATION
  Report Type: Report from Study
  Country: US (occurrence: US)
  Receive Date: 20120913
  Receipt Date: 20120913
  Transmission Date: 20130627
  Serious: No
  Sender: FDA-Public Use
  Company Number: US-VERTEX PHARMACEUTICAL INC.-AE-2012-008869

PATIENT
  Sex: Female
  Weight: 88.64 kg

DRUGS (7)
  1. INCIVEK [Suspect]
     Indication: HEPATITIS C
     Route: 048
  2. PEGASYS PROCLICK [Concomitant]
     Indication: HEPATITIS C
  3. RIBPAK [Concomitant]
     Indication: HEPATITIS C
  4. CENTRUM CHW [Concomitant]
  5. PANTOPRAZOLE [Concomitant]
  6. TRUVADA [Concomitant]
  7. SUSTIVA [Concomitant]

REACTIONS (6)
  - Influenza like illness [Unknown]
  - Irritability [Unknown]
  - Fatigue [Unknown]
  - Anaemia [Unknown]
  - Diarrhoea [Unknown]
  - Dysgeusia [Unknown]
